FAERS Safety Report 19199281 (Version 1)
Quarter: 2021Q2

REPORT INFORMATION
  Report Type: Report from Study
  Country: None (occurrence: ES)
  Receive Date: 20210429
  Receipt Date: 20210429
  Transmission Date: 20210717
  Serious: Yes (Other)
  Sender: FDA-Public Use
  Company Number: ES-ABBVIE-21K-144-3881621-00

PATIENT
  Age: 51 Year
  Sex: Female

DRUGS (1)
  1. IBRUTINIB [Suspect]
     Active Substance: IBRUTINIB
     Indication: CHRONIC LYMPHOCYTIC LEUKAEMIA
     Dosage: DATE OF LAST ADMINISTRATION: 22?APR?2021
     Route: 048
     Dates: start: 20180315, end: 20210422

REACTIONS (4)
  - Renal disorder [Recovering/Resolving]
  - Osteoarthritis [Recovering/Resolving]
  - Fungal infection [Recovering/Resolving]
  - Gastroenteritis [Recovering/Resolving]

NARRATIVE: CASE EVENT DATE: 20210406
